FAERS Safety Report 17585833 (Version 1)
Quarter: 2020Q1

REPORT INFORMATION
  Report Type: Spontaneous
  Country: DE (occurrence: DE)
  Receive Date: 20200326
  Receipt Date: 20200326
  Transmission Date: 20200409
  Serious: Yes (Other)
  Sender: FDA-Public Use
  Company Number: PHHY2018DE195884

PATIENT
  Age: 56 Year
  Sex: Female
  Weight: 56 kg

DRUGS (9)
  1. PERTUZUMAB. [Suspect]
     Active Substance: PERTUZUMAB
     Dosage: LAST ADMINISTRATION OF PERTUZUMAB PRIOR TO THE EVENT WAS ON 21/AUG/2018
     Route: 065
     Dates: start: 20180619
  2. DOCETAXEL. [Suspect]
     Active Substance: DOCETAXEL
     Indication: BREAST CANCER
     Dosage: 152 MG, UNK
     Route: 065
  3. PERTUZUMAB. [Suspect]
     Active Substance: PERTUZUMAB
     Indication: BREAST CANCER
     Dosage: 420 MG, UNK
     Route: 065
  4. DOCETAXEL. [Suspect]
     Active Substance: DOCETAXEL
     Dosage: LAST ADMINISTRATION OF DOCETAXEL PRIOR TO THE EVENT WAS ON 21/AUG/2018
     Route: 065
     Dates: start: 20180619
  5. PERTUZUMAB. [Suspect]
     Active Substance: PERTUZUMAB
     Dosage: 420 MG, UNK
     Route: 065
     Dates: start: 20180821
  6. TRASTUZUMAB. [Suspect]
     Active Substance: TRASTUZUMAB
     Dosage: ON 21/AUG/2018, SHE RECEIVED LAST ADMINISTRATION PRIOR TO ADVERSE EVENT.
     Route: 041
     Dates: start: 20180619, end: 20180710
  7. DOCETAXEL. [Suspect]
     Active Substance: DOCETAXEL
     Dosage: 152 MG, UNK
     Route: 065
     Dates: start: 20180821
  8. TRASTUZUMAB. [Suspect]
     Active Substance: TRASTUZUMAB
     Indication: BREAST CANCER
     Dosage: 336 MG, UNK
     Route: 042
  9. TRASTUZUMAB. [Suspect]
     Active Substance: TRASTUZUMAB
     Dosage: 336 MG, UNK
     Route: 042
     Dates: start: 20180821

REACTIONS (3)
  - Mastitis [Not Recovered/Not Resolved]
  - Soft tissue infection [Recovering/Resolving]
  - Oedema peripheral [Recovered/Resolved]

NARRATIVE: CASE EVENT DATE: 20180723
